FAERS Safety Report 8828755 (Version 1)
Quarter: 2012Q4

REPORT INFORMATION
  Report Type: 
  Country: IN (occurrence: IN)
  Receive Date: 20121008
  Receipt Date: 20121008
  Transmission Date: 20130627
  Serious: Yes (Other)
  Sender: FDA-Public Use
  Company Number: IN-BRISTOL-MYERS SQUIBB COMPANY-17006388

PATIENT

DRUGS (1)
  1. DASATINIB [Suspect]

REACTIONS (1)
  - Myelodysplastic syndrome [Unknown]
